FAERS Safety Report 8702871 (Version 2)
Quarter: 2013Q4

REPORT INFORMATION
  Report Type: Spontaneous
  Country: US (occurrence: US)
  Receive Date: 20120803
  Receipt Date: 20131031
  Transmission Date: 20140711
  Serious: Yes (Life-Threatening, Hospitalization)
  Sender: FDA-Public Use
  Company Number: US-009507513-2007SP017987

PATIENT
  Age: 39 Year
  Sex: Male
  Weight: 147.42 kg

DRUGS (2)
  1. PROVENTIL [Suspect]
     Indication: ASTHMA
     Dosage: 100 ?G, UNKNOWN
     Route: 048
     Dates: start: 20070401, end: 20071105
  2. ALBUTEROL - USP (WARRICK) [Concomitant]

REACTIONS (1)
  - Therapeutic product ineffective [Unknown]
